FAERS Safety Report 11305886 (Version 1)
Quarter: 2015Q3

REPORT INFORMATION
  Report Type: Spontaneous
  Country: US (occurrence: US)
  Receive Date: 20150723
  Receipt Date: 20150723
  Transmission Date: 20151125
  Serious: Yes (Hospitalization)
  Sender: FDA-Public Use
  Company Number: US-PROCTER_AND_GAMBLE-CIO15044852

PATIENT
  Age: 30 Year
  Sex: Female

DRUGS (1)
  1. DIPHENHYDRAMINE HCL [Suspect]
     Active Substance: DIPHENHYDRAMINE HYDROCHLORIDE
     Route: 048

REACTIONS (35)
  - Cardiac arrest [Recovered/Resolved]
  - Seizure [Recovered/Resolved]
  - Urine ketone body present [Unknown]
  - Phlebitis [Recovered/Resolved]
  - Extrasystoles [Recovering/Resolving]
  - Toxicity to various agents [Recovering/Resolving]
  - Tachycardia [Recovering/Resolving]
  - Pupil fixed [Recovered/Resolved]
  - Physical examination abnormal [Unknown]
  - Sinus tachycardia [Unknown]
  - Circulatory collapse [Recovered/Resolved]
  - Atrioventricular block [Unknown]
  - Thrombophlebitis superficial [Unknown]
  - Blood bicarbonate decreased [Unknown]
  - Blood pressure decreased [Recovered/Resolved]
  - Ventricular extrasystoles [Recovered/Resolved]
  - Aggression [Recovering/Resolving]
  - Stupor [Recovered/Resolved]
  - Electrocardiogram QT prolonged [Unknown]
  - Blood pH decreased [Unknown]
  - Heart rate increased [Unknown]
  - Respiratory rate increased [Unknown]
  - Depressed level of consciousness [Recovered/Resolved]
  - Mucous membrane disorder [Unknown]
  - Deep vein thrombosis [Unknown]
  - Unresponsive to stimuli [Recovered/Resolved]
  - Mydriasis [Recovered/Resolved]
  - Metabolic acidosis [Unknown]
  - Anion gap increased [Unknown]
  - Haemodynamic instability [Recovered/Resolved]
  - Skin discolouration [Recovering/Resolving]
  - Blood pressure increased [Recovered/Resolved]
  - Overdose [Recovered/Resolved]
  - Pain in extremity [Unknown]
  - Peripheral swelling [Unknown]
